FAERS Safety Report 16923957 (Version 5)
Quarter: 2020Q1

REPORT INFORMATION
  Report Type: Report from Study
  Country: IE (occurrence: IE)
  Receive Date: 20191016
  Receipt Date: 20200210
  Transmission Date: 20200409
  Serious: Yes (Hospitalization, Disabling, Other)
  Sender: FDA-Public Use
  Company Number: NVSC2019IE001724

PATIENT
  Sex: Male

DRUGS (3)
  1. GILENYA [Suspect]
     Active Substance: FINGOLIMOD HYDROCHLORIDE
     Indication: RELAPSING-REMITTING MULTIPLE SCLEROSIS
     Dosage: 0.5 MG, QD
     Route: 048
     Dates: start: 201605, end: 20190918
  2. GILENYA [Suspect]
     Active Substance: FINGOLIMOD HYDROCHLORIDE
     Dosage: 0.5 MG, Q24H
     Route: 048
     Dates: start: 201609, end: 201609
  3. GILENYA [Suspect]
     Active Substance: FINGOLIMOD HYDROCHLORIDE
     Dosage: 0.5 UNK
     Route: 048
     Dates: start: 2016, end: 20190915

REACTIONS (11)
  - Visual field defect [Unknown]
  - Gait disturbance [Recovering/Resolving]
  - Neurological symptom [Not Recovered/Not Resolved]
  - Progressive multifocal leukoencephalopathy [Recovered/Resolved with Sequelae]
  - Clumsiness [Unknown]
  - JC polyomavirus test positive [Not Recovered/Not Resolved]
  - Lymphocyte count decreased [Recovering/Resolving]
  - Dysarthria [Recovering/Resolving]
  - Cognitive disorder [Unknown]
  - Hemianopia [Unknown]
  - Visual impairment [Unknown]

NARRATIVE: CASE EVENT DATE: 2016
